FAERS Safety Report 5629869-X (Version None)
Quarter: 2008Q1

REPORT INFORMATION
  Report Type: 
  Country: None (occurrence: None)
  Receive Date: 20080218
  Receipt Date: 20080207
  Transmission Date: 20080703
  Serious: Yes (Hospitalization)
  Sender: FDA-Public Use
  Company Number: BR-ROCHE-546567

PATIENT
  Age: 56 Year
  Sex: Male

DRUGS (2)
  1. INTERFERON ALFA [Suspect]
     Indication: HEPATITIS C
     Route: 048
     Dates: start: 20070101, end: 20070101
  2. RIBAVIRIN [Concomitant]
     Indication: HEPATITIS C
     Dates: start: 20070101, end: 20070101

REACTIONS (3)
  - MEMORY IMPAIRMENT [None]
  - NO THERAPEUTIC RESPONSE [None]
  - PERITONITIS BACTERIAL [None]
